FAERS Safety Report 24021910 (Version 2)
Quarter: 2024Q2

REPORT INFORMATION
  Report Type: Spontaneous
  Country: US (occurrence: US)
  Receive Date: 20240627
  Receipt Date: 20240627
  Transmission Date: 20240716
  Serious: No
  Sender: FDA-Public Use
  Company Number: US-ROCHE-3548504

PATIENT
  Age: 70 Year
  Sex: Female

DRUGS (2)
  1. VABYSMO [Suspect]
     Active Substance: FARICIMAB\FARICIMAB-SVOA
     Indication: Age-related macular degeneration
     Route: 065
  2. EYLEA [Concomitant]
     Active Substance: AFLIBERCEPT

REACTIONS (3)
  - Haemorrhage [Unknown]
  - Retinal vasculitis [Unknown]
  - Aqueous humour leakage [Unknown]
